FAERS Safety Report 8965913 (Version 1)
Quarter: 2012Q4

REPORT INFORMATION
  Report Type: 
  Country: JP (occurrence: JP)
  Receive Date: 20121217
  Receipt Date: 20121217
  Transmission Date: 20130627
  Serious: No
  Sender: FDA-Public Use
  Company Number: PHHY2012JP103113

PATIENT
  Age: 97 Year
  Sex: Male

DRUGS (1)
  1. LAMISIL [Suspect]
     Dosage: 12 mg, QD (daily)
     Route: 048

REACTIONS (2)
  - Dysphagia [Unknown]
  - Wrong technique in drug usage process [Unknown]
